FAERS Safety Report 9649302 (Version 1)
Quarter: 2013Q4

REPORT INFORMATION
  Report Type: Spontaneous
  Country: PT (occurrence: PT)
  Receive Date: 20131028
  Receipt Date: 20131028
  Transmission Date: 20140711
  Serious: Yes (Other)
  Sender: FDA-Public Use
  Company Number: PT-TEVA-439153ISR

PATIENT
  Age: 61 Year
  Sex: Male
  Weight: 75 kg

DRUGS (3)
  1. OLFEN [Suspect]
     Indication: MUSCULOSKELETAL CHEST PAIN
     Dosage: MEDICATED PLASTER
     Route: 061
     Dates: start: 20130618, end: 20130619
  2. MORFEX [Concomitant]
     Indication: INSOMNIA
     Dosage: 15 MILLIGRAM DAILY; CAPSULE, HARD
     Route: 048
     Dates: start: 2009
  3. LORSEDAL [Concomitant]
     Indication: ANXIETY
     Dosage: 2.5 MILLIGRAM DAILY;
     Route: 048
     Dates: start: 2009

REACTIONS (4)
  - Dermatitis bullous [Recovered/Resolved]
  - Application site pruritus [Recovered/Resolved]
  - Dermatitis contact [Recovered/Resolved]
  - Malaise [Recovered/Resolved]
